FAERS Safety Report 6257541-4 (Version None)
Quarter: 2009Q3

REPORT INFORMATION
  Report Type: 
  Country: None (occurrence: None)
  Receive Date: 20090706
  Receipt Date: 20090624
  Transmission Date: 20100115
  Serious: Yes (Hospitalization)
  Sender: FDA-Public Use
  Company Number: PHHY2009US25252

PATIENT
  Sex: Female
  Weight: 74 kg

DRUGS (4)
  1. ERL 080A ERL+TAB [Suspect]
     Indication: RENAL TRANSPLANT
     Dosage: 720 MG, BID
     Route: 048
     Dates: start: 20080319
  2. ERL 080A ERL+TAB [Suspect]
     Indication: IMMUNOSUPPRESSION
  3. TACROLIMUS [Concomitant]
     Indication: RENAL TRANSPLANT
     Dosage: UNK
     Dates: start: 20080319
  4. TACROLIMUS [Concomitant]
     Indication: IMMUNOSUPPRESSION

REACTIONS (6)
  - ANAEMIA [None]
  - COMPLICATIONS OF TRANSPLANTED KIDNEY [None]
  - LEUKOPENIA [None]
  - PANCREAS TRANSPLANT [None]
  - PYREXIA [None]
  - THROMBOCYTOSIS [None]
